FAERS Safety Report 22296196 (Version 1)
Quarter: 2023Q2

REPORT INFORMATION
  Report Type: Spontaneous
  Country: BR (occurrence: BR)
  Receive Date: 20230508
  Receipt Date: 20230508
  Transmission Date: 20230722
  Serious: Yes (Hospitalization)
  Sender: FDA-Public Use
  Company Number: BR-BAYER-2023A063542

PATIENT
  Age: 62 Year
  Sex: Male
  Weight: 118 kg

DRUGS (9)
  1. ULTRAVIST [Suspect]
     Active Substance: IOPROMIDE
     Indication: Computerised tomogram
     Dosage: 140, ONCE
     Route: 042
     Dates: start: 20230429, end: 20230429
  2. ULTRAVIST [Suspect]
     Active Substance: IOPROMIDE
     Indication: Splenomegaly
  3. ULTRAVIST [Suspect]
     Active Substance: IOPROMIDE
     Indication: Metabolic syndrome
  4. ASPIRIN [Concomitant]
     Active Substance: ASPIRIN
  5. DIOVAN [Concomitant]
     Active Substance: VALSARTAN
  6. DIOSMIN [Concomitant]
     Active Substance: DIOSMIN
  7. AMILORIDE HYDROCHLORIDE\CHLORTHALIDONE [Concomitant]
     Active Substance: AMILORIDE HYDROCHLORIDE\CHLORTHALIDONE
  8. ALLOPURINOL [Concomitant]
     Active Substance: ALLOPURINOL
  9. METFORMIN HYDROCHLORIDE [Concomitant]
     Active Substance: METFORMIN HYDROCHLORIDE

REACTIONS (4)
  - Contrast media allergy [None]
  - Cough [None]
  - Hyperaemia [None]
  - Wheezing [None]

NARRATIVE: CASE EVENT DATE: 20230429
